FAERS Safety Report 5251537-7 (Version None)
Quarter: 2007Q1

REPORT INFORMATION
  Report Type: 
  Country: None (occurrence: None)
  Receive Date: 20070228
  Receipt Date: 20061011
  Transmission Date: 20070707
  Serious: Yes (Other)
  Sender: FDA-Public Use
  Company Number: US-GLAXOSMITHKLINE-A0606799A

PATIENT
  Age: 11 Year
  Sex: Male

DRUGS (2)
  1. LAMICTAL [Suspect]
     Indication: PARTIAL SEIZURES
     Dosage: 700MG PER DAY
     Route: 048
  2. RISPERDAL [Concomitant]

REACTIONS (3)
  - CONVULSION [None]
  - DIZZINESS [None]
  - FATIGUE [None]
